FAERS Safety Report 5410812-3 (Version None)
Quarter: 2007Q3

REPORT INFORMATION
  Report Type: 
  Country: None (occurrence: None)
  Receive Date: 20070810
  Receipt Date: 20070806
  Transmission Date: 20080115
  Serious: Yes (Death)
  Sender: FDA-Public Use
  Company Number: PHEH2007US00703

PATIENT
  Age: 21 Year
  Sex: Male

DRUGS (1)
  1. CLOZARIL [Suspect]
     Indication: SCHIZOPHRENIA
     Dosage: 350 MG, QD
     Route: 048

REACTIONS (8)
  - ACCIDENTAL DEATH [None]
  - ANTIPSYCHOTIC DRUG LEVEL ABOVE THERAPEUTIC [None]
  - BLOOD ALCOHOL INCREASED [None]
  - BLOOD CAFFEINE [None]
  - DRUG SCREEN POSITIVE [None]
  - DRUG TOXICITY [None]
  - URINE ALCOHOL TEST POSITIVE [None]
  - URINE COTININE TEST POSITIVE [None]
